FAERS Safety Report 14101629 (Version 2)
Quarter: 2017Q4

REPORT INFORMATION
  Report Type: Spontaneous
  Country: TW (occurrence: TW)
  Receive Date: 20171018
  Receipt Date: 20171018
  Transmission Date: 20180321
  Serious: Yes (Hospitalization)
  Sender: FDA-Public Use
  Company Number: TW-CIPLA LTD.-2017TW18204

PATIENT

DRUGS (17)
  1. DIAZEPAM. [Suspect]
     Active Substance: DIAZEPAM
     Indication: CATATONIA
     Dosage: 10 MG DILUTED IN 500 ML NORMAL SALINE
     Route: 041
  2. CLOZAPINE. [Suspect]
     Active Substance: CLOZAPINE
     Indication: CATATONIA
     Dosage: 100 MG, PER DAY, DURING 5TH EPISODE
     Route: 065
  3. RISPERIDONE. [Suspect]
     Active Substance: RISPERIDONE
     Indication: CATATONIA
     Dosage: 4 MG, PER DAY
     Route: 065
  4. OLANZAPINE. [Suspect]
     Active Substance: OLANZAPINE
     Indication: CATATONIA
     Dosage: 15 MG, PER DAY
     Route: 065
  5. LOXAPINE. [Suspect]
     Active Substance: LOXAPINE
     Indication: CATATONIA
     Dosage: 150 MG, PER DAY
     Route: 065
  6. HALOPERIDOL. [Suspect]
     Active Substance: HALOPERIDOL
     Indication: CATATONIA
     Dosage: 15 MG, PER DAY
     Route: 065
  7. LORAZEPAM. [Suspect]
     Active Substance: LORAZEPAM
     Indication: CATATONIA
     Dosage: 3 MG, PER DAY DURING 2ND EPISODE
     Route: 048
  8. LORAZEPAM. [Suspect]
     Active Substance: LORAZEPAM
     Dosage: 2 MG, FOR 3 DOSES WITH AN INTERVAL OF 2H
     Route: 030
  9. LORAZEPAM. [Suspect]
     Active Substance: LORAZEPAM
     Dosage: 2 MG, PER DAY
     Route: 048
  10. CLOZAPINE. [Suspect]
     Active Substance: CLOZAPINE
     Dosage: 300 MG, PER DAY
     Route: 065
  11. LORAZEPAM. [Suspect]
     Active Substance: LORAZEPAM
     Dosage: 3 MG, PER DAY, SEVENTH EPISODE
     Route: 048
  12. DIAZEPAM. [Suspect]
     Active Substance: DIAZEPAM
     Dosage: UNK, FOR 2 DAYS DURING 2ND EPISODE
     Route: 041
  13. LORAZEPAM. [Suspect]
     Active Substance: LORAZEPAM
     Dosage: 4 MG, FIRST 2 H, DURING SEVENTH EPISODE
     Route: 030
  14. LORAZEPAM. [Suspect]
     Active Substance: LORAZEPAM
     Dosage: 2 MG, PER DAY, DURING SEVENTH EPISODE
     Route: 030
  15. DIAZEPAM. [Suspect]
     Active Substance: DIAZEPAM
     Dosage: 2 MG, PER DAY, DURING 4TH EPISODE
     Route: 065
  16. QUETIAPINE. [Suspect]
     Active Substance: QUETIAPINE
     Indication: CATATONIA
     Dosage: 550 MG, PER DAY
     Route: 065
  17. CLOZAPINE. [Suspect]
     Active Substance: CLOZAPINE
     Dosage: 200 MG, PER DAY, DURING 6TH EPISODE
     Route: 065

REACTIONS (2)
  - Catatonia [Recovering/Resolving]
  - Therapy non-responder [Unknown]
